FAERS Safety Report 8415783-3 (Version None)
Quarter: 2012Q2

REPORT INFORMATION
  Report Type: 
  Country: None (occurrence: None)
  Receive Date: 20120530
  Receipt Date: 20120511
  Transmission Date: 20120825
  Serious: Yes (Disabling, Other)
  Sender: FDA-Public Use
  Company Number: 2135225-2012-00044

PATIENT

DRUGS (5)
  1. AETHOXYSKLEROL [Suspect]
     Indication: VARICOSE VEIN
     Dates: start: 20060420, end: 20060421
  2. AETHOXYSKLEROL [Suspect]
     Indication: VARICOSE VEIN
     Dates: start: 20060526
  3. AETHOXYSKLEROL [Suspect]
     Indication: VARICOSE VEIN
     Dates: start: 20050530
  4. AETHOXYSKLEROL [Suspect]
     Indication: VARICOSE VEIN
     Dates: start: 20091209
  5. AETHOXYSKLEROL [Suspect]
     Indication: VARICOSE VEIN
     Dates: start: 20100107

REACTIONS (8)
  - NAUSEA [None]
  - EYE DISORDER [None]
  - VISUAL IMPAIRMENT [None]
  - TYPE I HYPERSENSITIVITY [None]
  - VARICOSE VEIN [None]
  - CARDIOVASCULAR DISORDER [None]
  - BLOOD PRESSURE DECREASED [None]
  - OCULAR PEMPHIGOID [None]
